FAERS Safety Report 9383641 (Version 2)
Quarter: 2013Q3

REPORT INFORMATION
  Report Type: Spontaneous
  Country: SE (occurrence: SE)
  Receive Date: 20130704
  Receipt Date: 20130923
  Transmission Date: 20140515
  Serious: Yes (Other)
  Sender: FDA-Public Use
  Company Number: SE-PFIZER INC-2013192435

PATIENT
  Age: 69 Year
  Sex: Female

DRUGS (1)
  1. DALACIN [Suspect]
     Indication: BACTERIAL INFECTION
     Dosage: UNK

REACTIONS (5)
  - Diarrhoea haemorrhagic [Unknown]
  - Weight decreased [Unknown]
  - Nausea [Unknown]
  - Mental disorder [Unknown]
  - Diarrhoea [Unknown]
